FAERS Safety Report 14614044 (Version 1)
Quarter: 2018Q1

REPORT INFORMATION
  Report Type: Spontaneous
  Country: NL (occurrence: NL)
  Receive Date: 20180308
  Receipt Date: 20180308
  Transmission Date: 20180509
  Serious: Yes (Other)
  Sender: FDA-Public Use
  Company Number: NL-TEVA-2018-NL-865698

PATIENT
  Sex: Male

DRUGS (3)
  1. CALCI CHEW D3 500/400 [Concomitant]
  2. SALBUTAMOL 400 [Concomitant]
     Dosage: ZN MAX 4/DAY
  3. PREDNISONE. [Suspect]
     Active Substance: PREDNISONE
     Indication: CHRONIC OBSTRUCTIVE PULMONARY DISEASE
     Dosage: 1DD1, 7 DAYS
     Dates: start: 2015

REACTIONS (1)
  - Cyanosis central [Recovered/Resolved]
